FAERS Safety Report 11375461 (Version 2)
Quarter: 2015Q3

REPORT INFORMATION
  Report Type: Spontaneous
  Country: US (occurrence: US)
  Receive Date: 20150813
  Receipt Date: 20150922
  Transmission Date: 20151125
  Serious: Yes (Other)
  Sender: FDA-Public Use
  Company Number: US-JNJFOC-20150806605

PATIENT
  Sex: Male
  Weight: 83.92 kg

DRUGS (1)
  1. RISPERDAL [Suspect]
     Active Substance: RISPERIDONE
     Indication: SCHIZOAFFECTIVE DISORDER
     Route: 048
     Dates: start: 201409, end: 201503

REACTIONS (3)
  - Adverse drug reaction [Recovered/Resolved]
  - Body temperature increased [Recovered/Resolved]
  - Myocardial infarction [Recovered/Resolved]
